FAERS Safety Report 23957300 (Version 1)
Quarter: 2024Q2

REPORT INFORMATION
  Report Type: Spontaneous
  Country: US (occurrence: US)
  Receive Date: 20240610
  Receipt Date: 20240610
  Transmission Date: 20240716
  Serious: No
  Sender: FDA-Public Use
  Company Number: US-Covis Pharma GmbH-2024COV00660

PATIENT
  Sex: Female

DRUGS (15)
  1. PRILOSEC [Suspect]
     Active Substance: OMEPRAZOLE MAGNESIUM
  2. CALQUENCE [Suspect]
     Active Substance: ACALABRUTINIB
     Indication: Chronic lymphocytic leukaemia
     Route: 048
  3. ATORVASTATIN [Suspect]
     Active Substance: ATORVASTATIN
  4. CYCLOBENZAPRINE [Suspect]
     Active Substance: CYCLOBENZAPRINE
  5. EFFEXOR [Suspect]
     Active Substance: VENLAFAXINE HYDROCHLORIDE
  6. ELIQUIS [Suspect]
     Active Substance: APIXABAN
  7. LASIX [Suspect]
     Active Substance: FUROSEMIDE
  8. ATIVAN [Suspect]
     Active Substance: LORAZEPAM
  9. METOPROLOL [Suspect]
     Active Substance: METOPROLOL
  10. NYSTATIN [Suspect]
     Active Substance: NYSTATIN
  11. POTASSIUM [Suspect]
     Active Substance: POTASSIUM
  12. TYLENOL [Suspect]
     Active Substance: ACETAMINOPHEN
  13. VERAPAMIL [Suspect]
     Active Substance: VERAPAMIL HYDROCHLORIDE
  14. VITAMIN B12 [Suspect]
     Active Substance: CYANOCOBALAMIN
  15. VITAMIN D3 [Suspect]
     Active Substance: CHOLECALCIFEROL

REACTIONS (1)
  - Rash [Not Recovered/Not Resolved]
